FAERS Safety Report 20897444 (Version 1)
Quarter: 2022Q2

REPORT INFORMATION
  Report Type: Spontaneous
  Country: US (occurrence: US)
  Receive Date: 20220531
  Receipt Date: 20220531
  Transmission Date: 20220721
  Serious: No
  Sender: FDA-Public Use
  Company Number: US-BRISTOL-MYERS SQUIBB COMPANY-2022-034413

PATIENT
  Age: 48 Year
  Sex: Female

DRUGS (1)
  1. REVLIMID [Suspect]
     Active Substance: LENALIDOMIDE
     Indication: Product used for unknown indication
     Dosage: QUANTITY: 14
     Route: 065
     Dates: start: 20220411

REACTIONS (6)
  - Fatigue [Unknown]
  - Dizziness [Unknown]
  - Eye swelling [Unknown]
  - Swelling [Unknown]
  - Urticaria [Unknown]
  - Headache [Unknown]
